FAERS Safety Report 11883874 (Version 2)
Quarter: 2016Q1

REPORT INFORMATION
  Report Type: Spontaneous
  Country: FR (occurrence: FR)
  Receive Date: 20160101
  Receipt Date: 20160223
  Transmission Date: 20160526
  Serious: Yes (Life-Threatening, Hospitalization, Disabling)
  Sender: FDA-Public Use
  Company Number: FR-ROCHE-1685926

PATIENT
  Age: 47 Year
  Sex: Female

DRUGS (10)
  1. QUADRASA [Concomitant]
  2. COBIMETINIB [Suspect]
     Active Substance: COBIMETINIB
     Indication: METASTATIC MALIGNANT MELANOMA
     Route: 048
     Dates: start: 20150616, end: 20151127
  3. GABAPENTINE [Concomitant]
     Active Substance: GABAPENTIN
     Dosage: PRN
     Route: 065
  4. ZELBORAF [Suspect]
     Active Substance: VEMURAFENIB
     Indication: METASTATIC MALIGNANT MELANOMA
     Route: 048
     Dates: start: 20150616, end: 20151127
  5. XANAX [Concomitant]
     Active Substance: ALPRAZOLAM
     Dosage: PRN
     Route: 065
  6. FIVASA (FRANCE) [Concomitant]
     Route: 065
  7. SULFARLEM [Concomitant]
     Active Substance: ANETHOLTRITHION
  8. OXYCONTIN [Concomitant]
     Active Substance: OXYCODONE HYDROCHLORIDE
     Route: 065
  9. HYDROCORTISONE. [Concomitant]
     Active Substance: HYDROCORTISONE
     Dosage: 20MG ON MORNINGS AND 10MG AT MIDDAYS
     Route: 065
  10. SOLUPRED (FRANCE) [Concomitant]
     Active Substance: PREDNISOLONE
     Route: 065

REACTIONS (2)
  - Large intestine perforation [Recovered/Resolved with Sequelae]
  - Pancreatitis acute [Recovering/Resolving]

NARRATIVE: CASE EVENT DATE: 20151127
